FAERS Safety Report 11227878 (Version 2)
Quarter: 2015Q3

REPORT INFORMATION
  Report Type: Spontaneous
  Country: JP (occurrence: JP)
  Receive Date: 20150630
  Receipt Date: 20150727
  Transmission Date: 20151125
  Serious: Yes (Other)
  Sender: FDA-Public Use
  Company Number: JP-GLAXOSMITHKLINE-JP2015JPN089569

PATIENT
  Sex: Female

DRUGS (1)
  1. VOTRIENT [Suspect]
     Active Substance: PAZOPANIB HYDROCHLORIDE
     Indication: RENAL CELL CARCINOMA STAGE IV
     Dosage: 800 MG, 1D
     Route: 048
     Dates: start: 20150511, end: 20150615

REACTIONS (4)
  - Thyroid disorder [Recovered/Resolved]
  - Metastases to lung [Unknown]
  - Renal cell carcinoma stage IV [Unknown]
  - Nausea [Recovered/Resolved]

NARRATIVE: CASE EVENT DATE: 201506
